FAERS Safety Report 9514089 (Version 4)
Quarter: 2014Q1

REPORT INFORMATION
  Report Type: Spontaneous
  Country: US (occurrence: US)
  Receive Date: 20130910
  Receipt Date: 20140226
  Transmission Date: 20141002
  Serious: Yes (Hospitalization, Other)
  Sender: FDA-Public Use
  Company Number: US-B.I. PHARMACEUTICALS,INC./RIDGEFIELD-2013-BI-27320BP

PATIENT
  Age: 56 Year
  Sex: Male

DRUGS (5)
  1. TRADJENTA [Suspect]
     Indication: TYPE 2 DIABETES MELLITUS
     Dosage: 5 MG
     Route: 048
     Dates: start: 20130809
  2. GLYCOSIDE [Concomitant]
     Route: 065
  3. CRESTOR [Concomitant]
     Route: 065
  4. EXFORGE [Concomitant]
     Route: 065
  5. CARVEDILOL [Concomitant]
     Route: 065

REACTIONS (4)
  - Pyrexia [Recovered/Resolved]
  - Rash generalised [Recovered/Resolved]
  - Stevens-Johnson syndrome [Recovered/Resolved]
  - Infection [Unknown]
